FAERS Safety Report 17187265 (Version 2)
Quarter: 2020Q2

REPORT INFORMATION
  Report Type: Report from Study
  Country: US (occurrence: US)
  Receive Date: 20191220
  Receipt Date: 20200518
  Transmission Date: 20200713
  Serious: Yes (Hospitalization)
  Sender: FDA-Public Use
  Company Number: US-ACTELION-A-NJ2019-193392

PATIENT
  Sex: Female
  Weight: 79.37 kg

DRUGS (4)
  1. VELETRI [Suspect]
     Active Substance: EPOPROSTENOL
     Indication: PULMONARY HYPERTENSION
     Dosage: 14 NG/KG, PER MIN
     Route: 042
  2. MELATONIN [Concomitant]
     Active Substance: MELATONIN
  3. WARFARIN [Concomitant]
     Active Substance: WARFARIN
  4. REVATIO [Concomitant]
     Active Substance: SILDENAFIL CITRATE

REACTIONS (6)
  - Flushing [Unknown]
  - Catheter site erythema [Unknown]
  - Catheter site infection [Unknown]
  - Pneumonia [Unknown]
  - Insomnia [Unknown]
  - Dyspnoea exertional [Not Recovered/Not Resolved]
